FAERS Safety Report 5339376-X (Version None)
Quarter: 2007Q2

REPORT INFORMATION
  Report Type: 
  Country: None (occurrence: None)
  Receive Date: 20070322
  Receipt Date: 20061024
  Transmission Date: 20071010
  Serious: Yes (Other)
  Sender: FDA-Public Use
  Company Number: 200613807BCC

PATIENT
  Age: 56 Year
  Sex: Female
  Weight: 60.782 kg

DRUGS (4)
  1. ALEVE (CAPLET) [Suspect]
     Indication: ARTHRITIS
     Dosage: 220 MG, QD; ORAL
     Route: 048
     Dates: start: 20060907
  2. ALEVE (CAPLET) [Suspect]
     Indication: NECK PAIN
     Dosage: 220 MG, QD; ORAL
     Route: 048
     Dates: start: 20060907
  3. MELOXICAM [Concomitant]
  4. LEVOXYL [Concomitant]

REACTIONS (7)
  - ANAPHYLACTIC REACTION [None]
  - DYSPNOEA [None]
  - ERYTHEMA [None]
  - HEART RATE INCREASED [None]
  - PRESYNCOPE [None]
  - PRURITUS GENERALISED [None]
  - URTICARIA [None]
